FAERS Safety Report 8275737-7 (Version None)
Quarter: 2012Q2

REPORT INFORMATION
  Report Type: 
  Country: None (occurrence: None)
  Receive Date: 20120410
  Receipt Date: 20120410
  Transmission Date: 20120825
  Serious: Yes (Hospitalization, Disabling)
  Sender: FDA-Public Use
  Company Number: None

PATIENT
  Age: 73 Year
  Sex: Female
  Weight: 97.5234 kg

DRUGS (2)
  1. PRADAXA [Suspect]
     Indication: CARDIAC DISORDER
     Dosage: 150MG 1 DAILY
     Dates: start: 20110621, end: 20110901
  2. PRADAXA [Suspect]
     Dosage: 75MG 1 DAILY

REACTIONS (3)
  - ASTHENIA [None]
  - ARTHROPATHY [None]
  - INCOHERENT [None]
